FAERS Safety Report 4596426-6 (Version None)
Quarter: 2005Q1

REPORT INFORMATION
  Report Type: 
  Country: None (occurrence: None)
  Receive Date: 20050228
  Receipt Date: 20050211
  Transmission Date: 20050727
  Serious: Yes (Hospitalization)
  Sender: FDA-Public Use
  Company Number: 2004BI000098

PATIENT
  Age: 66 Year
  Sex: Female
  Weight: 57.1532 kg

DRUGS (10)
  1. AVONEX [Suspect]
     Indication: MULTIPLE SCLEROSIS
     Dosage: 30 UG; QW; IM
     Route: 030
     Dates: start: 20010701, end: 20040601
  2. AVONEX [Suspect]
     Indication: MULTIPLE SCLEROSIS
     Dosage: 30 UG; QW; IM
     Route: 030
     Dates: start: 20040601
  3. DETROL LA [Concomitant]
  4. EVISTA [Concomitant]
  5. FLOMAX [Concomitant]
  6. PROVITAL [Concomitant]
  7. ACTONEL [Concomitant]
  8. BACLOFEN [Concomitant]
  9. CELEXA [Concomitant]
  10. SOLU-MEDROL [Concomitant]

REACTIONS (5)
  - CONDITION AGGRAVATED [None]
  - FALL [None]
  - FEMUR FRACTURE [None]
  - MULTIPLE SCLEROSIS [None]
  - PYREXIA [None]
